FAERS Safety Report 6693109-3 (Version None)
Quarter: 2010Q2

REPORT INFORMATION
  Report Type: 
  Country: None (occurrence: None)
  Receive Date: 20100422
  Receipt Date: 20100416
  Transmission Date: 20101027
  Serious: Yes (Death, Hospitalization)
  Sender: FDA-Public Use
  Company Number: IN-ELI_LILLY_AND_COMPANY-IN201004004877

PATIENT
  Sex: Male

DRUGS (2)
  1. XIGRIS [Suspect]
     Indication: SEPTIC SHOCK
     Dosage: UNK, UNKNOWN
     Dates: start: 20100415
  2. ANTIBIOTICS [Concomitant]
     Dosage: UNK, UNKNOWN
     Dates: start: 20100401

REACTIONS (1)
  - CARDIAC ARREST [None]
